FAERS Safety Report 23539483 (Version 1)
Quarter: 2024Q1

REPORT INFORMATION
  Report Type: Spontaneous
  Country: US (occurrence: US)
  Receive Date: 20240219
  Receipt Date: 20240219
  Transmission Date: 20240410
  Serious: No
  Sender: FDA-Public Use
  Company Number: US-BAYER-2024A026195

PATIENT

DRUGS (2)
  1. ALEVE [Suspect]
     Active Substance: NAPROXEN SODIUM
     Indication: Bone operation
     Dosage: 4 DF
  2. ALEVE [Suspect]
     Active Substance: NAPROXEN SODIUM
     Indication: Pain

REACTIONS (2)
  - Drug ineffective [None]
  - Incorrect dose administered [None]
